FAERS Safety Report 7576381-7 (Version None)
Quarter: 2011Q2

REPORT INFORMATION
  Report Type: 
  Country: None (occurrence: None)
  Receive Date: 20110628
  Receipt Date: 20110121
  Transmission Date: 20111010
  Serious: Yes (Hospitalization)
  Sender: FDA-Public Use
  Company Number: US-BAYER-201023200NA

PATIENT
  Age: 18 Year
  Sex: Female
  Weight: 81.633 kg

DRUGS (11)
  1. ADVAIR DISKUS 100/50 [Concomitant]
     Dosage: UNK
     Dates: start: 20090316
  2. MICROGESTIN 1.5/30 [Concomitant]
     Dosage: UNK
     Dates: start: 20090316
  3. IBUPROFEN [Concomitant]
     Dosage: 800 MG, UNK
     Dates: start: 20090202
  4. LEVAQUIN [Concomitant]
     Dosage: UNK
     Dates: start: 20090316
  5. LOESTRIN 1.5/30 [Concomitant]
  6. IBUPROFEN [Concomitant]
     Dosage: 400 MG, UNK
     Dates: start: 20081001
  7. DROSPIRENONE AND ETHINYL ESTRADIOL [Suspect]
     Indication: PRODUCT USED FOR UNKNOWN INDICATION
     Route: 048
  8. ROCEPHIN [Concomitant]
  9. YAZ [Suspect]
     Indication: PREMENSTRUAL SYNDROME
     Dosage: UNK
     Route: 048
     Dates: start: 20070101, end: 20080101
  10. PENICILLIN VK [Concomitant]
     Dosage: UNK
     Dates: start: 20090202
  11. YASMIN [Suspect]
     Indication: PREMENSTRUAL SYNDROME
     Dosage: UNK
     Route: 048
     Dates: start: 20070101, end: 20080101

REACTIONS (8)
  - PYREXIA [None]
  - ABDOMINAL PAIN [None]
  - BILIARY DYSKINESIA [None]
  - VOMITING [None]
  - GALLBLADDER NON-FUNCTIONING [None]
  - NAUSEA [None]
  - PAIN [None]
  - INJURY [None]
